FAERS Safety Report 11714077 (Version 5)
Quarter: 2020Q1

REPORT INFORMATION
  Report Type: Spontaneous
  Country: US (occurrence: US)
  Receive Date: 20151109
  Receipt Date: 20200313
  Transmission Date: 20200409
  Serious: No
  Sender: FDA-Public Use
  Company Number: US-PFIZER INC-2015370098

PATIENT
  Age: 82 Year
  Sex: Female

DRUGS (6)
  1. CEFAZOLIN [Suspect]
     Active Substance: CEFAZOLIN
     Dosage: UNK
  2. MEPERIDINE HCL [Suspect]
     Active Substance: MEPERIDINE HYDROCHLORIDE
     Dosage: UNK
  3. PROPOXYPHENE. [Suspect]
     Active Substance: PROPOXYPHENE
     Dosage: UNK
  4. TRAMADOL. [Suspect]
     Active Substance: TRAMADOL
     Dosage: UNK
  5. VICODIN [Suspect]
     Active Substance: ACETAMINOPHEN\HYDROCODONE BITARTRATE
     Dosage: UNK
  6. GLUCOTROL [Suspect]
     Active Substance: GLIPIZIDE
     Dosage: 15 MG, DAILY (1 TABLET IN THE MORNING AND TAKE 2 TABLETS EVERY NIGHT)
     Route: 048

REACTIONS (1)
  - Drug hypersensitivity [Unknown]
